FAERS Safety Report 22333352 (Version 1)
Quarter: 2023Q2

REPORT INFORMATION
  Report Type: Spontaneous
  Country: CN (occurrence: CN)
  Receive Date: 20230517
  Receipt Date: 20230517
  Transmission Date: 20230721
  Serious: Yes (Other)
  Sender: FDA-Public Use
  Company Number: CN-PFIZER INC-202300193111

PATIENT
  Age: 64 Year
  Sex: Male
  Weight: 40 kg

DRUGS (3)
  1. VORICONAZOLE [Suspect]
     Active Substance: VORICONAZOLE
     Indication: Pneumonia fungal
     Dosage: 0.2 G, 2X/DAY
     Route: 041
     Dates: start: 202304, end: 20230413
  2. VORICONAZOLE [Suspect]
     Active Substance: VORICONAZOLE
     Dosage: 0.15 G, 2X/DAY
     Route: 041
     Dates: start: 202304, end: 20230414
  3. CEFOPERAZONE SODIUM\SULBACTAM [Concomitant]
     Active Substance: CEFOPERAZONE SODIUM\SULBACTAM
     Indication: Anti-infective therapy
     Dosage: 3 G, 3X/DAY
     Route: 041
     Dates: start: 202304

REACTIONS (5)
  - Cardiotoxicity [Unknown]
  - Hallucination [Unknown]
  - Agitation [Unknown]
  - Palpitations [Unknown]
  - Drug level increased [Unknown]

NARRATIVE: CASE EVENT DATE: 20230412
